FAERS Safety Report 5487357-8 (Version None)
Quarter: 2007Q4

REPORT INFORMATION
  Report Type: 
  Country: None (occurrence: None)
  Receive Date: 20071015
  Receipt Date: 20071005
  Transmission Date: 20080405
  Serious: Yes (Hospitalization, Other)
  Sender: FDA-Public Use
  Company Number: 2007RL000400

PATIENT
  Age: 83 Year
  Sex: Female

DRUGS (11)
  1. RYTHMOL [Suspect]
     Indication: ARRHYTHMIA
     Dosage: PO
     Route: 048
  2. FLUINDIONE (FLUINDIONE) [Suspect]
     Indication: ATRIAL FIBRILLATION
     Dosage: QD; PO
     Route: 048
     Dates: start: 20070101, end: 20070701
  3. ACESISTEM [Concomitant]
  4. ALLOPURINOL [Concomitant]
  5. POTASSIUM CHLORIDE [Concomitant]
  6. TRIMETAZIDINE [Concomitant]
  7. ESOMEPRAZOLE [Concomitant]
  8. RILMENIDINE [Concomitant]
  9. NICARDIPINE HYDROCHLORIDE [Concomitant]
  10. LORAZEPAM [Concomitant]
  11. OXZEPAM [Concomitant]

REACTIONS (10)
  - BLOOD PRESSURE INCREASED [None]
  - CONTUSION [None]
  - DIZZINESS [None]
  - DRUG INTERACTION [None]
  - DYSSTASIA [None]
  - FALL [None]
  - INTERNATIONAL NORMALISED RATIO INCREASED [None]
  - INTRACRANIAL HAEMATOMA [None]
  - SUBDURAL HAEMATOMA [None]
  - WOUND [None]
